FAERS Safety Report 5936285-X (Version None)
Quarter: 2008Q4

REPORT INFORMATION
  Report Type: 
  Country: None (occurrence: None)
  Receive Date: 20081030
  Receipt Date: 20081016
  Transmission Date: 20090506
  Serious: Yes (Hospitalization, Other)
  Sender: FDA-Public Use
  Company Number: BE-CELGENEUS-013-20484-08101786

PATIENT
  Sex: Female
  Weight: 60 kg

DRUGS (2)
  1. INNOHEP [Suspect]
     Route: 058
     Dates: start: 20070423, end: 20070717
  2. OMNIBIONTA [Concomitant]
     Indication: VITAMIN SUPPLEMENTATION
     Route: 065
     Dates: end: 20070718

REACTIONS (3)
  - DRUG EXPOSURE DURING PREGNANCY [None]
  - POSTPARTUM HAEMORRHAGE [None]
  - UTERINE HAEMATOMA [None]
